FAERS Safety Report 25802555 (Version 2)
Quarter: 2025Q3

REPORT INFORMATION
  Report Type: Spontaneous
  Country: EU (occurrence: EU)
  Receive Date: 20250915
  Receipt Date: 20250929
  Transmission Date: 20251020
  Serious: Yes (Hospitalization, Other)
  Sender: MYLAN
  Company Number: EU-GRINDPROD-2025005967

PATIENT
  Age: 45 Year
  Sex: Male

DRUGS (2)
  1. ALPRAZOLAM [Interacting]
     Active Substance: ALPRAZOLAM
     Indication: Generalised anxiety disorder
     Dosage: 0.5 MILLIGRAM, Q8H, EVERY 8 H
  2. ETHYL ALCOHOL [Interacting]
     Active Substance: ALCOHOL
     Indication: Product used for unknown indication

REACTIONS (5)
  - Somnolence [Recovered/Resolved]
  - Dysarthria [Recovered/Resolved]
  - Ataxia [Recovered/Resolved]
  - Alcohol interaction [Recovered/Resolved]
  - Drug interaction [Unknown]
